FAERS Safety Report 6914457-5 (Version None)
Quarter: 2010Q3

REPORT INFORMATION
  Report Type: 
  Country: None (occurrence: None)
  Receive Date: 20100803
  Receipt Date: 20100723
  Transmission Date: 20110219
  Serious: Yes (Other)
  Sender: FDA-Public Use
  Company Number: 2010MA001192

PATIENT
  Age: 82 Year
  Sex: Female

DRUGS (16)
  1. GABAPENTIN [Suspect]
     Indication: BACK PAIN
     Dosage: 300 MG; PO
     Route: 048
     Dates: start: 20100510, end: 20100516
  2. MS CONTIN [Concomitant]
  3. SENNA [Concomitant]
  4. LACTULOSE [Concomitant]
  5. CLOTRIMAZOLE [Concomitant]
  6. BISOPROLOL [Concomitant]
  7. LEVOTHYROXINE [Concomitant]
  8. CALCICHEW D3 [Concomitant]
  9. DIPYRIDAMOLE [Concomitant]
  10. PREDNISOLONE [Concomitant]
  11. AMITRIPTYLINE HYDROCHLORIDE [Concomitant]
  12. AMLODIPINE [Concomitant]
  13. ALENDRONIC ACID [Concomitant]
  14. LANSOPRAZOLE [Concomitant]
  15. ACETYLSALICYLIC ACID SRT [Concomitant]
  16. FUROSEMIDE [Concomitant]

REACTIONS (1)
  - HEPATITIS [None]
